FAERS Safety Report 20836809 (Version 1)
Quarter: 2022Q2

REPORT INFORMATION
  Report Type: Spontaneous
  Country: GB (occurrence: GB)
  Receive Date: 20220517
  Receipt Date: 20220517
  Transmission Date: 20220720
  Serious: Yes (Other)
  Sender: FDA-Public Use
  Company Number: None

PATIENT
  Age: 5 Year
  Sex: Female
  Weight: 23.3 kg

DRUGS (5)
  1. MONTELUKAST [Suspect]
     Active Substance: MONTELUKAST SODIUM
     Indication: Product used for unknown indication
     Dosage: AT NIGHT
     Dates: start: 20220323, end: 20220509
  2. AMOXICILLIN [Concomitant]
     Active Substance: AMOXICILLIN
     Route: 048
     Dates: start: 20220217, end: 20220318
  3. BECLOMETHASONE DIPROPIONATE [Concomitant]
     Active Substance: BECLOMETHASONE DIPROPIONATE
     Dosage: VIA SPACER
     Route: 055
     Dates: start: 20220223
  4. LORATADINE [Concomitant]
     Active Substance: LORATADINE
     Dosage: AS NEEDED
     Dates: start: 20220323, end: 20220505
  5. ALBUTEROL [Concomitant]
     Active Substance: ALBUTEROL
     Dosage: AS NECESSARY
     Route: 055
     Dates: start: 20220302

REACTIONS (3)
  - Crying [Unknown]
  - Depressed mood [Unknown]
  - Nightmare [Unknown]

NARRATIVE: CASE EVENT DATE: 20220418
